FAERS Safety Report 12452929 (Version 3)
Quarter: 2016Q3

REPORT INFORMATION
  Report Type: Spontaneous
  Country: US (occurrence: US)
  Receive Date: 20160609
  Receipt Date: 20160714
  Transmission Date: 20161109
  Serious: No
  Sender: FDA-Public Use
  Company Number: US-PFIZER INC-2016262048

PATIENT
  Age: 53 Year
  Sex: Female
  Weight: 65 kg

DRUGS (4)
  1. ONE A DAY WOMEN^S [Concomitant]
     Active Substance: MINERALS\VITAMINS
     Indication: SUPPLEMENTATION THERAPY
     Dosage: UNK, 1X/DAY
  2. LYRICA [Suspect]
     Active Substance: PREGABALIN
     Indication: POST HERPETIC NEURALGIA
     Dosage: 150 MG, DAILY (TWO 75 MG CAPSULES BY MOUTH DAILY)
     Route: 048
     Dates: start: 20151201
  3. LYRICA [Suspect]
     Active Substance: PREGABALIN
     Dosage: 200 MG, DAILY
     Dates: start: 20160101
  4. LYRICA [Suspect]
     Active Substance: PREGABALIN
     Dosage: 300 MG, DAILY THREE 100MG CAPSULES A DAY
     Dates: start: 20160301

REACTIONS (7)
  - Hypoaesthesia [Not Recovered/Not Resolved]
  - Visual acuity reduced [Not Recovered/Not Resolved]
  - Weight increased [Unknown]
  - Fluid retention [Unknown]
  - Drug effect decreased [Unknown]
  - Arthralgia [Not Recovered/Not Resolved]
  - Drug ineffective [Unknown]

NARRATIVE: CASE EVENT DATE: 2015
